FAERS Safety Report 18072472 (Version 1)
Quarter: 2020Q3

REPORT INFORMATION
  Report Type: Report from Study
  Country: CA (occurrence: CA)
  Receive Date: 20200727
  Receipt Date: 20200727
  Transmission Date: 20201103
  Serious: Yes (Other)
  Sender: FDA-Public Use
  Company Number: CA-ACCORD-192491

PATIENT
  Age: 42 Year
  Sex: Female

DRUGS (3)
  1. COSENTYX [Suspect]
     Active Substance: SECUKINUMAB
     Indication: PSORIASIS
     Dosage: 1 EVERY 1 WEEKS
     Route: 058
  2. COAL TAR. [Concomitant]
     Active Substance: COAL TAR
  3. METHOTREXATE. [Suspect]
     Active Substance: METHOTREXATE
     Indication: PRODUCT USED FOR UNKNOWN INDICATION
     Dosage: 1 EVERY 1 WEEKS

REACTIONS (6)
  - Injection site pain [Unknown]
  - Skin exfoliation [Unknown]
  - Pruritus [Unknown]
  - Weight decreased [Unknown]
  - Psoriasis [Unknown]
  - Breast cancer [Unknown]
